FAERS Safety Report 5590549-0 (Version None)
Quarter: 2007Q4

REPORT INFORMATION
  Report Type: 
  Country: None (occurrence: None)
  Receive Date: 20071214
  Receipt Date: 20061213
  Transmission Date: 20080405
  Serious: Yes (Other)
  Sender: FDA-Public Use
  Company Number: S06-USA-02779-01

PATIENT
  Age: 69 Year
  Sex: Female

DRUGS (13)
  1. NAMENDA [Suspect]
     Indication: DEMENTIA
     Dosage: 10 MG BID PO
     Route: 048
     Dates: start: 20060615, end: 20060801
  2. NAMENDA [Suspect]
     Indication: DEMENTIA
     Dosage: 15 MG QD PO
     Route: 048
     Dates: start: 20060801, end: 20060901
  3. NAMENDA [Suspect]
     Indication: DEMENTIA
     Dosage: 10 MG BID PO
     Route: 048
     Dates: start: 20060901, end: 20061205
  4. NAMENDA [Suspect]
     Indication: DEMENTIA
     Dosage: 5 MG BID PO
     Route: 048
     Dates: start: 20061206
  5. NAMENDA [Suspect]
     Indication: DEMENTIA
     Dosage: 5 MG QD PO
     Route: 048
     Dates: start: 20060525, end: 20060531
  6. NAMENDA [Suspect]
     Indication: DEMENTIA
     Dosage: 5 MG BID PO
     Route: 048
     Dates: start: 20060601, end: 20060607
  7. NAMENDA [Suspect]
     Indication: DEMENTIA
     Dosage: 15 MG QD PO
     Route: 048
     Dates: start: 20060608, end: 20060614
  8. ARICEPT [Concomitant]
  9. EVISTA [Concomitant]
  10. VESICARE [Concomitant]
  11. ASPIRIN [Concomitant]
  12. VITAMINS NOS [Concomitant]
  13. XANAX [Concomitant]

REACTIONS (8)
  - ANXIETY [None]
  - BLOOD GLUCOSE INCREASED [None]
  - DEPRESSION [None]
  - DRY EYE [None]
  - ENERGY INCREASED [None]
  - FEELING ABNORMAL [None]
  - INSOMNIA [None]
  - NASAL DRYNESS [None]
